FAERS Safety Report 9521998 (Version 1)
Quarter: 2013Q3

REPORT INFORMATION
  Report Type: Spontaneous
  Country: JP (occurrence: JP)
  Receive Date: 20130913
  Receipt Date: 20130913
  Transmission Date: 20140515
  Serious: Yes (Life-Threatening)
  Sender: FDA-Public Use
  Company Number: JP-ROCHE-1271334

PATIENT
  Age: 51 Year
  Sex: Male
  Weight: 72 kg

DRUGS (3)
  1. ROCEPHIN [Suspect]
     Indication: PRODUCT USED FOR UNKNOWN INDICATION
     Route: 042
     Dates: start: 20130530, end: 20130618
  2. MINOMYCIN [Concomitant]
     Dosage: DOSAGE IS UNCERTAIN.
     Route: 042
     Dates: start: 20130611
  3. MEROPENEM [Concomitant]
     Route: 042
     Dates: start: 20130618, end: 20130623

REACTIONS (1)
  - Pneumonia [Recovered/Resolved]
